FAERS Safety Report 10012191 (Version 1)
Quarter: 2014Q1

REPORT INFORMATION
  Report Type: Spontaneous
  Country: US (occurrence: None)
  Receive Date: 20140313
  Receipt Date: 20140313
  Transmission Date: 20141002
  Serious: Yes (Other)
  Sender: FDA-Public Use
  Company Number: None

PATIENT
  Age: 85 Year
  Sex: Male
  Weight: 69.4 kg

DRUGS (15)
  1. CILOSTAZOL [Suspect]
     Indication: VEIN DISORDER
     Route: 048
     Dates: end: 20140222
  2. METOPROLOLE [Concomitant]
  3. EFFIENT [Concomitant]
  4. PLAVIX [Concomitant]
  5. LOW DOSE ASPIRIN [Concomitant]
  6. VITAMIN C [Concomitant]
  7. VITAMIN E [Concomitant]
  8. VITAMIN D [Concomitant]
  9. VITAMIN B [Concomitant]
  10. SLOW MAG. [Concomitant]
  11. OCUVITE [Concomitant]
  12. GLUCASOMINE SULFATE [Concomitant]
  13. ALPHA LIPOIC ACID [Concomitant]
  14. FOLIC ACID [Concomitant]
  15. FISAL FISH OIL [Concomitant]

REACTIONS (3)
  - Erythema [None]
  - Feeling abnormal [None]
  - Visual impairment [None]
